FAERS Safety Report 4365776-0 (Version None)
Quarter: 2004Q2

REPORT INFORMATION
  Report Type: 
  Country: None (occurrence: None)
  Receive Date: 20040520
  Receipt Date: 20040507
  Transmission Date: 20050107
  Serious: No
  Sender: FDA-Public Use
  Company Number: 2004CG00630

PATIENT
  Age: 41 Year
  Sex: Female

DRUGS (5)
  1. NAROPIN [Suspect]
     Indication: LOCAL ANAESTHESIA
     Dosage: 40 ML ONCE RNB
     Dates: start: 20030507, end: 20030507
  2. COZAAR [Concomitant]
  3. DIPRIVAN [Concomitant]
  4. SUFENTA [Concomitant]
  5. SEVOFLURANE [Concomitant]

REACTIONS (7)
  - ALLODYNIA [None]
  - ANAESTHETIC COMPLICATION NEUROLOGICAL [None]
  - LESION OF SCIATIC NERVE [None]
  - MOTOR DYSFUNCTION [None]
  - NEUROPATHY [None]
  - PARAESTHESIA [None]
  - POSTERIOR TIBIAL NERVE INJURY [None]
